FAERS Safety Report 13523672 (Version 2)
Quarter: 2018Q2

REPORT INFORMATION
  Report Type: Spontaneous
  Country: US (occurrence: US)
  Receive Date: 20170508
  Receipt Date: 20180613
  Transmission Date: 20180711
  Serious: No
  Sender: FDA-Public Use
  Company Number: US-VIFOR (INTERNATIONAL) INC.-VIT-2017-01061

PATIENT
  Age: 61 Year
  Sex: Male

DRUGS (9)
  1. ENALAPRIL [Concomitant]
     Active Substance: ENALAPRIL
  2. SYNTHROID [Concomitant]
     Active Substance: LEVOTHYROXINE SODIUM
  3. SODIUM BICARBONATE. [Concomitant]
     Active Substance: SODIUM BICARBONATE
  4. VELTASSA [Suspect]
     Active Substance: PATIROMER
     Indication: HYPERKALAEMIA
     Route: 048
     Dates: start: 20170113
  5. VELTASSA [Suspect]
     Active Substance: PATIROMER
     Route: 048
     Dates: start: 20170127
  6. ZINC. [Concomitant]
     Active Substance: ZINC
  7. COLECALCIFEROL [Concomitant]
     Active Substance: CHOLECALCIFEROL
  8. FISH OIL [Concomitant]
     Active Substance: FISH OIL
  9. AMLODIPINE [Concomitant]
     Active Substance: AMLODIPINE BESYLATE

REACTIONS (3)
  - Nausea [Not Recovered/Not Resolved]
  - Drug dose omission [Unknown]
  - Constipation [Unknown]

NARRATIVE: CASE EVENT DATE: 20170113
